FAERS Safety Report 6814898-0 (Version None)
Quarter: 2010Q3

REPORT INFORMATION
  Report Type: 
  Country: None (occurrence: None)
  Receive Date: 20100702
  Receipt Date: 20100623
  Transmission Date: 20110219
  Serious: Yes (Other)
  Sender: FDA-Public Use
  Company Number: US-SHIRE-ALL1-2010-03568

PATIENT

DRUGS (6)
  1. FOSRENOL [Suspect]
     Indication: HYPERPHOSPHATAEMIA
     Dosage: 1000 MG. WITH MEALS
     Route: 048
     Dates: start: 20090701
  2. SERTRALINE [Concomitant]
  3. LOVENOX [Concomitant]
  4. FLOMAX [Concomitant]
  5. LIPITOR [Concomitant]
  6. OMEPRAZOLE [Concomitant]

REACTIONS (3)
  - FALL [None]
  - SKIN LACERATION [None]
  - TRAUMATIC FRACTURE [None]
